FAERS Safety Report 10039008 (Version 1)
Quarter: 2014Q1

REPORT INFORMATION
  Report Type: Spontaneous
  Country: US (occurrence: US)
  Receive Date: 20140326
  Receipt Date: 20140326
  Transmission Date: 20141002
  Serious: No
  Sender: FDA-Public Use
  Company Number: US-009507513-1403USA011477

PATIENT
  Sex: 0

DRUGS (2)
  1. EMEND [Suspect]
     Dosage: 80 MG DAYS 2 AND 3
  2. EMEND [Suspect]
     Dosage: 125 MG, DAY ONE
     Route: 048

REACTIONS (3)
  - Inappropriate schedule of drug administration [Unknown]
  - No adverse event [Unknown]
  - Product quality issue [Unknown]
